FAERS Safety Report 9944846 (Version 1)
Quarter: 2014Q1

REPORT INFORMATION
  Report Type: Report from Study
  Country: US (occurrence: US)
  Receive Date: 20140303
  Receipt Date: 20140303
  Transmission Date: 20141002
  Serious: No
  Sender: FDA-Public Use
  Company Number: US-ABBVIE-13P-163-1052228-00

PATIENT
  Sex: Female
  Weight: 114.41 kg

DRUGS (13)
  1. HUMIRA [Suspect]
     Indication: PSORIATIC ARTHROPATHY
     Dates: start: 201010, end: 201110
  2. ASPIRIN [Concomitant]
     Indication: NUTRITIONAL SUPPLEMENTATION
  3. BUTRANS [Concomitant]
     Indication: PAIN
     Dosage: PATCH
  4. COQ10 [Concomitant]
     Indication: NUTRITIONAL SUPPLEMENTATION
  5. CYMBALTA [Concomitant]
     Indication: DEPRESSION
  6. FISH OIL [Concomitant]
     Indication: NUTRITIONAL SUPPLEMENTATION
  7. FOLIC ACID [Concomitant]
     Indication: NUTRITIONAL SUPPLEMENTATION
  8. LOSARTAN [Concomitant]
     Indication: HYPERTENSION
  9. METHOTREXATE [Concomitant]
     Indication: PSORIATIC ARTHROPATHY
  10. NEURONTIN [Concomitant]
     Indication: NEURALGIA
  11. VITAMIN B 12 [Concomitant]
     Indication: NUTRITIONAL SUPPLEMENTATION
  12. VITAMIN C [Concomitant]
     Indication: NUTRITIONAL SUPPLEMENTATION
  13. VITIMAN D [Concomitant]
     Indication: NUTRITIONAL SUPPLEMENTATION

REACTIONS (1)
  - Drug ineffective [Not Recovered/Not Resolved]
